FAERS Safety Report 17509894 (Version 1)
Quarter: 2020Q1

REPORT INFORMATION
  Report Type: Spontaneous
  Country: JP (occurrence: JP)
  Receive Date: 20200306
  Receipt Date: 20200306
  Transmission Date: 20200409
  Serious: Yes (Death)
  Sender: FDA-Public Use
  Company Number: JP-ACTELION-A-CH2016-141570

PATIENT
  Age: 47 Year
  Sex: Female

DRUGS (9)
  1. FERROUS CITRATE NA [Concomitant]
     Active Substance: SODIUM FERROUS CITRATE
  2. PREDNISOLONE. [Concomitant]
     Active Substance: PREDNISOLONE
  3. WARFARIN [Concomitant]
     Active Substance: WARFARIN
  4. TADALAFIL. [Concomitant]
     Active Substance: TADALAFIL
  5. FOSAMAC [Concomitant]
     Active Substance: ALENDRONATE SODIUM
  6. OPSUMIT [Suspect]
     Active Substance: MACITENTAN
     Indication: PULMONARY ARTERIAL HYPERTENSION
     Dosage: 10 MG, QD
     Route: 048
     Dates: start: 20160808, end: 20180219
  7. UPTRAVI [Concomitant]
     Active Substance: SELEXIPAG
  8. SODIUM RABEPRAZOLE [Concomitant]
     Active Substance: RABEPRAZOLE SODIUM
  9. URSO [Concomitant]
     Active Substance: URSODIOL

REACTIONS (2)
  - Pleural effusion [Recovered/Resolved]
  - Renal cancer [Fatal]

NARRATIVE: CASE EVENT DATE: 20160822
